FAERS Safety Report 4620770-7 (Version None)
Quarter: 2005Q1

REPORT INFORMATION
  Report Type: 
  Country: None (occurrence: None)
  Receive Date: 20050325
  Receipt Date: 20050316
  Transmission Date: 20050727
  Serious: Yes (Hospitalization)
  Sender: FDA-Public Use
  Company Number: 2005-00942

PATIENT
  Age: 76 Year
  Sex: Female
  Weight: 99.8 kg

DRUGS (9)
  1. OXYTROL [Suspect]
     Indication: INCONTINENCE
     Dosage: 1 PATCH, 2/WEEK, TRANSDERMAL
     Route: 062
     Dates: start: 20040301
  2. CLONIDINE [Concomitant]
  3. PLENDIL [Concomitant]
  4. ACCUPRIL [Concomitant]
  5. FUROSEMIDE [Concomitant]
  6. AMOXICILLIN [Concomitant]
  7. POTASSIUM ACETATE [Concomitant]
  8. ZANTAC [Concomitant]
  9. COUMADIN [Concomitant]

REACTIONS (6)
  - APPLICATION SITE ERYTHEMA [None]
  - APPLICATION SITE PRURITUS [None]
  - ATRIAL FIBRILLATION [None]
  - CONDITION AGGRAVATED [None]
  - HEART RATE INCREASED [None]
  - HEART RATE IRREGULAR [None]
